FAERS Safety Report 16539839 (Version 1)
Quarter: 2019Q3

REPORT INFORMATION
  Report Type: Spontaneous
  Country: PT (occurrence: PT)
  Receive Date: 20190708
  Receipt Date: 20190708
  Transmission Date: 20191004
  Serious: Yes (Hospitalization, Other)
  Sender: FDA-Public Use
  Company Number: PT-MYLANLABS-2019M1056332

PATIENT
  Age: 57 Year
  Sex: Male

DRUGS (2)
  1. CLARITHROMYCIN. [Suspect]
     Active Substance: CLARITHROMYCIN
     Indication: PNEUMONIA KLEBSIELLA
     Dosage: UNK, UNKNOWN FREQ.
     Route: 065
  2. AMOXICILLIN/CLAVULANIC ACID [Suspect]
     Active Substance: AMOXICILLIN\CLAVULANIC ACID
     Indication: KLEBSIELLA INFECTION
     Dosage: UNK, UNKNOWN FREQ.
     Route: 065

REACTIONS (7)
  - Infectious pleural effusion [Unknown]
  - Haemoptysis [Unknown]
  - Chest pain [Unknown]
  - Klebsiella infection [Unknown]
  - Drug ineffective [Unknown]
  - Condition aggravated [Unknown]
  - Pyrexia [Unknown]
